FAERS Safety Report 25139089 (Version 1)
Quarter: 2025Q1

REPORT INFORMATION
  Report Type: Spontaneous
  Country: US (occurrence: US)
  Receive Date: 20250331
  Receipt Date: 20250331
  Transmission Date: 20250408
  Serious: Yes (Other)
  Sender: PIRAMAL
  Company Number: US-PCCINC-2025-PPS-000007

PATIENT

DRUGS (1)
  1. DROXIDOPA [Suspect]
     Active Substance: DROXIDOPA
     Indication: Orthostatic hypotension

REACTIONS (3)
  - Cardiomyopathy [Unknown]
  - Ventricular extrasystoles [Recovering/Resolving]
  - Bundle branch block left [Unknown]
